FAERS Safety Report 9417581 (Version 2)
Quarter: 2013Q4

REPORT INFORMATION
  Report Type: Spontaneous
  Country: US (occurrence: US)
  Receive Date: 20130724
  Receipt Date: 20131022
  Transmission Date: 20140711
  Serious: No
  Sender: FDA-Public Use
  Company Number: US-BRISTOL-MYERS SQUIBB COMPANY-19029552

PATIENT
  Age: 78 Year
  Sex: Male
  Weight: 107.03 kg

DRUGS (2)
  1. ELIQUIS [Suspect]
     Indication: ATRIAL FIBRILLATION
     Dosage: LAST DOSE: 01MAY2013
     Dates: start: 20130323, end: 20130501
  2. PRADAXA [Concomitant]

REACTIONS (1)
  - Haematuria [Recovered/Resolved]
